FAERS Safety Report 10147294 (Version 1)
Quarter: 2014Q2

REPORT INFORMATION
  Report Type: Spontaneous
  Country: US (occurrence: US)
  Receive Date: 20140501
  Receipt Date: 20140501
  Transmission Date: 20141212
  Serious: No
  Sender: FDA-Public Use
  Company Number: US-SA-2014SA008823

PATIENT
  Age: 50 Year
  Sex: Female
  Weight: 104 kg

DRUGS (5)
  1. HECTOROL [Suspect]
     Indication: HYPERPARATHYROIDISM
     Route: 042
     Dates: start: 20131217, end: 20131217
  2. HECTOROL [Suspect]
     Indication: HYPERPARATHYROIDISM
     Route: 042
     Dates: start: 20131219, end: 20131219
  3. HECTOROL [Suspect]
     Indication: HYPERPARATHYROIDISM
     Route: 042
     Dates: start: 20131220, end: 20131220
  4. HECTOROL [Suspect]
     Indication: HYPERPARATHYROIDISM
     Route: 042
     Dates: start: 20131230, end: 20131230
  5. HEPARIN [Concomitant]
     Indication: ANTICOAGULANT THERAPY
     Dates: start: 20131114

REACTIONS (1)
  - Chest discomfort [Recovered/Resolved]
